FAERS Safety Report 17084405 (Version 2)
Quarter: 2019Q4

REPORT INFORMATION
  Report Type: Spontaneous
  Country: PL (occurrence: PL)
  Receive Date: 20191127
  Receipt Date: 20191218
  Transmission Date: 20200122
  Serious: Yes (Hospitalization)
  Sender: FDA-Public Use
  Company Number: PL-GLAXOSMITHKLINE-PL2019EME211183

PATIENT

DRUGS (2)
  1. ZINNAT [Suspect]
     Active Substance: CEFUROXIME
     Indication: PRODUCT USED FOR UNKNOWN INDICATION
     Dosage: UNK
  2. FANIPOS [Concomitant]
     Indication: PRODUCT USED FOR UNKNOWN INDICATION

REACTIONS (18)
  - Erythema [Unknown]
  - Malaise [Unknown]
  - Drug hypersensitivity [Unknown]
  - Ocular hyperaemia [Unknown]
  - Heart rate increased [Unknown]
  - Hyperhidrosis [Unknown]
  - Hot flush [Unknown]
  - Abdominal pain [Unknown]
  - Pruritus [Unknown]
  - Palpitations [Unknown]
  - Swelling of eyelid [Unknown]
  - Condition aggravated [Unknown]
  - Tinnitus [Unknown]
  - Paraesthesia [Unknown]
  - Eye swelling [Unknown]
  - Rash [Unknown]
  - Diarrhoea [Unknown]
  - Visual acuity reduced [Unknown]
